FAERS Safety Report 18293304 (Version 8)
Quarter: 2022Q2

REPORT INFORMATION
  Report Type: Spontaneous
  Country: US (occurrence: US)
  Receive Date: 20200921
  Receipt Date: 20220503
  Transmission Date: 20220721
  Serious: Yes (Hospitalization)
  Sender: FDA-Public Use
  Company Number: US-BIOMARINAP-US-2020-132198

PATIENT
  Age: 14 Year
  Sex: Male

DRUGS (5)
  1. LARONIDASE [Suspect]
     Active Substance: LARONIDASE
     Indication: Mucopolysaccharidosis
     Dosage: 11.60 MG, QW
     Route: 041
     Dates: start: 20200519
  2. LARONIDASE [Suspect]
     Active Substance: LARONIDASE
     Dosage: 11.6 MG, QOW
     Route: 042
     Dates: start: 20200519
  3. LARONIDASE [Suspect]
     Active Substance: LARONIDASE
     Dosage: 11.6 MG, QOW
     Route: 042
     Dates: start: 20100505, end: 20200519
  4. LARONIDASE [Suspect]
     Active Substance: LARONIDASE
     Dosage: 11.6 MG, Q3W
     Route: 042
  5. LARONIDASE [Suspect]
     Active Substance: LARONIDASE
     Dosage: 11.6 MG, QOW
     Route: 042

REACTIONS (10)
  - Hospitalisation [Unknown]
  - Abdominal distension [Unknown]
  - General physical health deterioration [Not Recovered/Not Resolved]
  - COVID-19 [Not Recovered/Not Resolved]
  - SARS-CoV-2 test positive [Not Recovered/Not Resolved]
  - Asthenia [Unknown]
  - Cardiac disorder [Unknown]
  - Product use issue [Unknown]
  - Unevaluable event [Unknown]
  - Dyspnoea [Unknown]
